FAERS Safety Report 6783169-3 (Version None)
Quarter: 2010Q2

REPORT INFORMATION
  Report Type: 
  Country: None (occurrence: None)
  Receive Date: 20100622
  Receipt Date: 20100610
  Transmission Date: 20101027
  Serious: Yes (Life-Threatening, Hospitalization, Disabling)
  Sender: FDA-Public Use
  Company Number: JP-PFIZER INC-2009263638

PATIENT
  Age: 79 Year
  Sex: Female
  Weight: 49.5 kg

DRUGS (8)
  1. SUNITINIB MALATE [Suspect]
     Indication: RENAL CELL CARCINOMA
     Dosage: 50 MG, 1X/DAY
     Route: 048
     Dates: start: 20090623, end: 20090707
  2. SUNITINIB MALATE [Suspect]
     Dosage: 37.5 MG, 1X/DAY
     Route: 048
     Dates: start: 20090718, end: 20090720
  3. CALSLOT [Concomitant]
     Dosage: UNK
     Route: 048
     Dates: end: 20090702
  4. BLOPRESS [Concomitant]
     Dosage: UNK
     Route: 048
     Dates: start: 20090624
  5. GASMOTIN [Concomitant]
     Dosage: UNK
     Route: 048
     Dates: start: 20090702
  6. ATELEC [Concomitant]
     Dosage: UNK
     Route: 048
     Dates: start: 20090703
  7. ADONA [Concomitant]
     Dosage: UNK
     Route: 048
  8. RESLIN [Concomitant]
     Dosage: UNK
     Route: 048

REACTIONS (6)
  - CEREBRAL INFARCTION [None]
  - DECREASED APPETITE [None]
  - HYPOTHYROIDISM [None]
  - NAUSEA [None]
  - PLATELET COUNT DECREASED [None]
  - WHITE BLOOD CELL COUNT DECREASED [None]
